FAERS Safety Report 19079604 (Version 1)
Quarter: 2021Q1

REPORT INFORMATION
  Report Type: Spontaneous
  Country: IN (occurrence: IN)
  Receive Date: 20210331
  Receipt Date: 20210331
  Transmission Date: 20210420
  Serious: Yes (Hospitalization, Other)
  Sender: FDA-Public Use
  Company Number: IN-VALIDUS PHARMACEUTICALS LLC-IN-2021VAL000249

PATIENT
  Age: 3 Year
  Sex: Female
  Weight: 8.1 kg

DRUGS (3)
  1. FUROSEMIDE. [Suspect]
     Active Substance: FUROSEMIDE
     Indication: OEDEMA
     Dosage: 4 MG/KG, QD
     Route: 048
  2. PREDNISOLONE. [Concomitant]
     Active Substance: PREDNISOLONE
     Indication: NEPHROTIC SYNDROME
     Dosage: 2 MG/KG,QD
     Route: 048
  3. ENALAPRIL [Concomitant]
     Active Substance: ENALAPRIL
     Indication: HYPERTENSION
     Dosage: 0.3 MG, QD
     Route: 048

REACTIONS (10)
  - Shock [Recovering/Resolving]
  - Hypotension [Recovering/Resolving]
  - Renal tubular dysfunction [Recovered/Resolved]
  - Hypomagnesaemia [Recovered/Resolved]
  - Hypokalaemia [Recovered/Resolved]
  - Diarrhoea [Recovered/Resolved]
  - Polyuria [Recovered/Resolved]
  - Pseudo-Bartter syndrome [Recovering/Resolving]
  - Hypercalciuria [Recovered/Resolved]
  - Metabolic alkalosis [Recovered/Resolved]
